FAERS Safety Report 7182909-1 (Version None)
Quarter: 2010Q4

REPORT INFORMATION
  Report Type: 
  Country: None (occurrence: None)
  Receive Date: 20101209
  Receipt Date: 20101123
  Transmission Date: 20110411
  Serious: Yes (Hospitalization)
  Sender: FDA-Public Use
  Company Number: 210004490

PATIENT
  Age: 62 Year
  Sex: Male
  Weight: 54 kg

DRUGS (8)
  1. ERLOTINIB HYDROCHLORIDE [Suspect]
     Indication: NON-SMALL CELL LUNG CANCER
     Dosage: ORAL
     Route: 048
     Dates: start: 20100702
  2. GEMCITABINE [Suspect]
     Indication: NON-SMALL CELL LUNG CANCER
     Dosage: (1950 MG), INTRAVENOUS
     Route: 042
     Dates: start: 20100618
  3. CARBOPLATIN [Suspect]
     Indication: NON-SMALL CELL LUNG CANCER
     Dosage: (504 MG),INTRAVENOUS
     Route: 042
     Dates: start: 20100618
  4. IBERET [Concomitant]
  5. LEVODROPROPIZINE (LEVODROPROPIZINE) [Concomitant]
  6. METOPROLOL SUCCINATE [Concomitant]
  7. VITAMIN B COMPLEX (B-KOMPLEX ^LECIVA^) [Suspect]
  8. ACETAMINOPHEN [Concomitant]

REACTIONS (2)
  - ANAEMIA [None]
  - PYREXIA [None]
